FAERS Safety Report 8481684-8 (Version None)
Quarter: 2012Q3

REPORT INFORMATION
  Report Type: 
  Country: None (occurrence: None)
  Receive Date: 20120702
  Receipt Date: 20120619
  Transmission Date: 20120928
  Serious: Yes (Hospitalization)
  Sender: FDA-Public Use
  Company Number: DE-UCBSA-016133

PATIENT
  Age: 75 Year
  Sex: Female
  Weight: 67 kg

DRUGS (1)
  1. CIMZIA [Suspect]
     Indication: RHEUMATOID ARTHRITIS
     Route: 058
     Dates: start: 20100428, end: 20100721

REACTIONS (2)
  - PLEURISY [None]
  - PNEUMONIA [None]
